FAERS Safety Report 5634362-4 (Version None)
Quarter: 2008Q1

REPORT INFORMATION
  Report Type: 
  Country: None (occurrence: None)
  Receive Date: 20080131
  Receipt Date: 20071112
  Transmission Date: 20080703
  Serious: Yes (Hospitalization)
  Sender: FDA-Public Use
  Company Number: 163976USA

PATIENT
  Age: 47 Year
  Sex: Male

DRUGS (2)
  1. COPAXONE [Suspect]
     Indication: MULTIPLE SCLEROSIS
     Dosage: 20 MG, SUBCUTANEOUS
     Route: 058
     Dates: start: 20070503, end: 20070528
  2. INTERFERON BETA [Suspect]
     Dosage: 4.2857 MCG (30 MCG, 1 IN 1 WK), INTRAMUSCULAR
     Route: 030
     Dates: start: 20040325

REACTIONS (5)
  - DYSSTASIA [None]
  - INJECTION SITE ERYTHEMA [None]
  - INJECTION SITE SWELLING [None]
  - PYREXIA [None]
  - VIRAL INFECTION [None]
